FAERS Safety Report 8830930 (Version 1)
Quarter: 2012Q4

REPORT INFORMATION
  Report Type: 
  Country: US (occurrence: US)
  Receive Date: 20121009
  Receipt Date: 20121009
  Transmission Date: 20130627
  Serious: Yes (Other)
  Sender: FDA-Public Use
  Company Number: US-BAYER-2012-104679

PATIENT
  Sex: Female
  Weight: 61 kg

DRUGS (1)
  1. CAMPHOR\PHENOL [Suspect]
     Indication: ORAL HERPES
     Dosage: 1 DF, UNK
     Route: 061
     Dates: start: 20121002, end: 20121002

REACTIONS (1)
  - Dyspnoea [None]
